FAERS Safety Report 12799816 (Version 1)
Quarter: 2016Q3

REPORT INFORMATION
  Report Type: Spontaneous
  Country: FR (occurrence: FR)
  Receive Date: 20160930
  Receipt Date: 20160930
  Transmission Date: 20161109
  Serious: Yes (Hospitalization)
  Sender: FDA-Public Use
  Company Number: FR-SA-2016SA178579

PATIENT
  Age: 48 Year
  Sex: Female

DRUGS (9)
  1. METFORMIN [Concomitant]
     Active Substance: METFORMIN HYDROCHLORIDE
     Dosage: 1000 MG MORNING AND EVENING
  2. OLMETEC [Concomitant]
     Active Substance: OLMESARTAN MEDOXOMIL
     Dosage: MORNING
  3. VICTOZA [Concomitant]
     Active Substance: LIRAGLUTIDE
     Dosage: EVENING
  4. LANSOPRAZOLE. [Suspect]
     Active Substance: LANSOPRAZOLE
     Route: 048
     Dates: start: 20150828, end: 20150910
  5. REPAGLINIDE. [Concomitant]
     Active Substance: REPAGLINIDE
     Dosage: MORNING, AFTERNOON AND EVENING
  6. AMAREL [Suspect]
     Active Substance: GLIMEPIRIDE
     Indication: DIABETES MELLITUS
     Route: 048
     Dates: start: 20160721
  7. AMAREL [Suspect]
     Active Substance: GLIMEPIRIDE
     Indication: DIABETES MELLITUS
     Route: 048
     Dates: start: 20150828, end: 20150911
  8. LEVEMIR [Concomitant]
     Active Substance: INSULIN DETEMIR
     Dosage: 10 IU IN MORNING ?34 IU IN EVENING
  9. CERIS [Concomitant]
     Active Substance: TROSPIUM CHLORIDE
     Dosage: ONE TAB MORNING EVENING

REACTIONS (2)
  - Palmar-plantar erythrodysaesthesia syndrome [Recovered/Resolved]
  - Oral mucosa erosion [Recovered/Resolved]

NARRATIVE: CASE EVENT DATE: 20150909
